FAERS Safety Report 16537866 (Version 3)
Quarter: 2019Q3

REPORT INFORMATION
  Report Type: Report from Study
  Country: ZA (occurrence: ZA)
  Receive Date: 20190708
  Receipt Date: 20190724
  Transmission Date: 20191004
  Serious: Yes (Hospitalization, Other)
  Sender: FDA-Public Use
  Company Number: ZA-SA-2019SA176003

PATIENT
  Age: 53 Year
  Sex: Female

DRUGS (6)
  1. SERDEP [FLUOXETINE HYDROCHLORIDE] [Concomitant]
     Dosage: 50 MG, QD AFTER BREAKFAST
     Dates: start: 20100621
  2. GLUCOPHAGE XR [Concomitant]
     Active Substance: METFORMIN HYDROCHLORIDE
     Dosage: 1000 MG, QD
     Dates: start: 19860621
  3. INSULIN GLULISINE [Suspect]
     Active Substance: INSULIN GLULISINE
     Dosage: 14 U, TID
     Dates: start: 20190620
  4. ASPAVOR [Concomitant]
     Active Substance: ATORVASTATIN
     Dosage: 10 MG, QD
     Dates: start: 20190621
  5. ADCO ALZAM [Concomitant]
     Active Substance: ALPRAZOLAM
     Dosage: 0.5 MG, HS
     Dates: start: 20100621
  6. OPTISULIN (INSULIN GLARGINE) [Suspect]
     Active Substance: INSULIN GLARGINE
     Dosage: 20 U, HS
     Dates: start: 20190620

REACTIONS (4)
  - Hospitalisation [Unknown]
  - Cardiac failure [Not Recovered/Not Resolved]
  - Coma [Recovered/Resolved]
  - Glycosylated haemoglobin increased [Unknown]

NARRATIVE: CASE EVENT DATE: 20190625
